FAERS Safety Report 7902085-4 (Version None)
Quarter: 2011Q4

REPORT INFORMATION
  Report Type: 
  Country: None (occurrence: None)
  Receive Date: 20111108
  Receipt Date: 20111028
  Transmission Date: 20120403
  Serious: Yes (Hospitalization)
  Sender: FDA-Public Use
  Company Number: US-BAYER-2011-106863

PATIENT
  Age: 23 Year
  Sex: Female

DRUGS (9)
  1. KEFLEX [Concomitant]
     Indication: MASTITIS
     Dosage: 500 MG, QID
     Route: 048
     Dates: start: 20090730, end: 20090805
  2. DROSPIRENONE AND ETHINYL ESTRADIOL [Suspect]
     Indication: CONTRACEPTION
     Dosage: UNK
     Route: 048
     Dates: start: 20090701, end: 20090801
  3. KEFLEX [Concomitant]
     Indication: NIPPLE PAIN
  4. PROPOXYPHENE HYDROCHLORIDE [Concomitant]
     Dosage: UNK
     Route: 048
     Dates: start: 20090629
  5. APAP TAB [Concomitant]
     Dosage: UNK
     Dates: start: 20090629
  6. AMOXICILLIN [Concomitant]
     Dosage: 875 MG, UNK
     Route: 048
     Dates: start: 20090721
  7. ESTROGENIC SUBSTANCE [Concomitant]
  8. MULTI-VITAMIN [Concomitant]
     Dosage: UNK UNK, QD
     Dates: start: 20081001, end: 20090901
  9. OXYCODONE HCL AND ACETAMINOPHEN [Concomitant]
     Dosage: 5MG/325MG
     Dates: start: 20090626

REACTIONS (2)
  - PAIN [None]
  - PULMONARY EMBOLISM [None]
